FAERS Safety Report 6750572-7 (Version None)
Quarter: 2010Q2

REPORT INFORMATION
  Report Type: 
  Country: None (occurrence: None)
  Receive Date: 20100528
  Receipt Date: 20100528
  Transmission Date: 20101027
  Serious: Yes (Other)
  Sender: FDA-Public Use
  Company Number: None

PATIENT
  Sex: Female
  Weight: 63.5036 kg

DRUGS (2)
  1. PREVACID [Suspect]
     Indication: GASTROOESOPHAGEAL REFLUX DISEASE
     Dosage: 30 MG ONCE  DAILY PO
     Route: 048
     Dates: start: 20080411, end: 20100225
  2. PREVACID [Suspect]
     Indication: GASTROOESOPHAGEAL REFLUX DISEASE
     Dosage: 15MG ONCE DAILY PO
     Route: 048
     Dates: start: 20100225, end: 20100524

REACTIONS (6)
  - ARTHRALGIA [None]
  - BACK PAIN [None]
  - FOOT FRACTURE [None]
  - FRACTURE NONUNION [None]
  - PRODUCT LABEL ISSUE [None]
  - STRESS FRACTURE [None]
